FAERS Safety Report 18629737 (Version 2)
Quarter: 2021Q1

REPORT INFORMATION
  Report Type: Spontaneous
  Country: US (occurrence: US)
  Receive Date: 20201217
  Receipt Date: 20210114
  Transmission Date: 20210419
  Serious: Yes (Hospitalization, Other)
  Sender: FDA-Public Use
  Company Number: US-ALLERGAN-2047697US

PATIENT
  Sex: Female
  Weight: 94.2 kg

DRUGS (25)
  1. MS CONTIN [Suspect]
     Active Substance: MORPHINE SULFATE
     Indication: NEUROPATHY PERIPHERAL
  2. ALPRAZOLAM. [Concomitant]
     Active Substance: ALPRAZOLAM
     Dosage: 1 DF, BID, AS NEEDED
     Route: 048
  3. DULOXETINE. [Concomitant]
     Active Substance: DULOXETINE
     Indication: DEPRESSION
     Dosage: 60 MG, BID
     Route: 048
  4. ASCORBIC ACID. [Concomitant]
     Active Substance: ASCORBIC ACID
     Dosage: 1000 MG, QD
     Route: 048
  5. TELMISARTAN. [Concomitant]
     Active Substance: TELMISARTAN
     Dosage: 1 DF, QD
     Route: 048
  6. VITAMIN D3 [Concomitant]
     Active Substance: CHOLECALCIFEROL
     Indication: VITAMIN D DEFICIENCY
     Dosage: 1000 UNITS, QD
     Route: 048
  7. MS CONTIN [Suspect]
     Active Substance: MORPHINE SULFATE
     Indication: PAIN
     Dosage: 30 MG, Q12H
     Route: 048
     Dates: start: 20200604
  8. CYCLOBENZAPRINE. [Concomitant]
     Active Substance: CYCLOBENZAPRINE
     Dosage: 1 DF, Q8HR, AS NEEDED
     Route: 048
  9. HUMALOG [Concomitant]
     Active Substance: INSULIN LISPRO
     Dosage: 5U BEFORE EACH MEAL; ADD 1U FOR EVERY 25G OF CARBS EATEN WITH EACH MEAL; MAX DAILY DOSE 30U
     Route: 058
  10. KOMBIGLYZE XR [Concomitant]
     Active Substance: METFORMIN HYDROCHLORIDE\SAXAGLIPTIN HYDROCHLORIDE
     Dosage: 2 DF, QD
     Route: 048
  11. THERAGRAN?M [Concomitant]
     Active Substance: VITAMINS
     Dosage: 1 DF, BID
     Route: 048
  12. ASPIRIN. [Concomitant]
     Active Substance: ASPIRIN
     Dosage: 81 MG, QD
     Route: 048
  13. WELLBUTRIN [Concomitant]
     Active Substance: BUPROPION HYDROCHLORIDE
     Indication: DEPRESSION
     Dosage: 150 MG, QD
     Route: 048
  14. FEMARA [Concomitant]
     Active Substance: LETROZOLE
     Dosage: 1 DF, QHS
     Route: 048
  15. WELLBUTRIN [Concomitant]
     Active Substance: BUPROPION HYDROCHLORIDE
     Indication: ANXIETY
  16. NEURONTIN [Concomitant]
     Active Substance: GABAPENTIN
     Indication: NEUROPATHY PERIPHERAL
     Dosage: 600 MG, BID
     Route: 048
  17. ZOFRAN [Concomitant]
     Active Substance: ONDANSETRON HYDROCHLORIDE
     Indication: NAUSEA
     Dosage: 8 MG, Q8HR, AS NEEDED
  18. ZOFRAN [Concomitant]
     Active Substance: ONDANSETRON HYDROCHLORIDE
     Indication: VOMITING
  19. DULOXETINE. [Concomitant]
     Active Substance: DULOXETINE
     Indication: ANXIETY
  20. IBRANCE [Concomitant]
     Active Substance: PALBOCICLIB
     Dosage: 1 DF, QD, 21 DAYS FOLLOWED BY 7 DAYS OFF EACH MONTH
     Route: 048
  21. LOMOTIL [Concomitant]
     Active Substance: ATROPINE SULFATE\DIPHENOXYLATE HYDROCHLORIDE
     Dosage: 1 DF, QID, AS NEEDED
     Route: 048
  22. NORCO [Suspect]
     Active Substance: ACETAMINOPHEN\HYDROCODONE BITARTRATE
     Indication: PAIN
     Dosage: 2 DF, Q4HR, AS NEEDED
     Route: 048
     Dates: start: 20180417
  23. LETROZOLE. [Concomitant]
     Active Substance: LETROZOLE
     Indication: BREAST CANCER METASTATIC
     Dosage: 2.5 MG, QD
     Dates: start: 20170725
  24. LEVEMIR [Concomitant]
     Active Substance: INSULIN DETEMIR
     Dosage: 85 UNITS, QD
     Route: 058
  25. OMEGA 3?ACID? ETHYL ESTERS [Concomitant]
     Dosage: 2 DF, BID
     Route: 048

REACTIONS (31)
  - Pelvic fluid collection [Unknown]
  - Pulmonary oedema [Unknown]
  - Myoclonus [Recovered/Resolved]
  - Muscle contractions involuntary [Not Recovered/Not Resolved]
  - Metastases to bone [Not Recovered/Not Resolved]
  - Leukopenia [Not Recovered/Not Resolved]
  - Muscle twitching [Unknown]
  - Asthenia [Unknown]
  - Mental status changes [Recovered/Resolved]
  - Sleep apnoea syndrome [Unknown]
  - Hypercapnia [Unknown]
  - Hypoxia [Unknown]
  - Metabolic encephalopathy [Recovering/Resolving]
  - Ventricular enlargement [Not Recovered/Not Resolved]
  - Tremor [Recovering/Resolving]
  - Hepatic steatosis [Unknown]
  - Cardiomegaly [Not Recovered/Not Resolved]
  - Mitral valve incompetence [Not Recovered/Not Resolved]
  - Acute kidney injury [Recovered/Resolved]
  - Cardiac failure congestive [Unknown]
  - Disorganised speech [Unknown]
  - Cancer pain [Not Recovered/Not Resolved]
  - Ventricular hypertrophy [Not Recovered/Not Resolved]
  - Somnolence [Unknown]
  - Oropharyngeal pain [Unknown]
  - Cholelithiasis [Unknown]
  - Tenderness [Unknown]
  - Confusional state [Unknown]
  - Headache [Unknown]
  - Hyperkalaemia [Recovered/Resolved]
  - Cough [Unknown]

NARRATIVE: CASE EVENT DATE: 20200720
